FAERS Safety Report 7091772-9 (Version None)
Quarter: 2010Q4

REPORT INFORMATION
  Report Type: 
  Country: None (occurrence: None)
  Receive Date: 20101109
  Receipt Date: 20101028
  Transmission Date: 20110411
  Serious: No
  Sender: FDA-Public Use
  Company Number: US-MERCK-1007USA02949

PATIENT
  Age: 32 Year
  Sex: Male
  Weight: 110 kg

DRUGS (21)
  1. ISENTRESS [Suspect]
     Indication: HIV INFECTION
     Route: 048
     Dates: start: 20100526
  2. TRUVADA [Concomitant]
     Indication: HIV INFECTION
     Route: 065
     Dates: start: 20100526
  3. IBUPROFEN [Concomitant]
     Route: 065
  4. ASPIRIN [Concomitant]
     Route: 065
  5. HYDROCORTISONE [Concomitant]
     Route: 065
  6. SEBULEX [Concomitant]
     Route: 065
  7. PREDNISONE [Concomitant]
     Dosage: FOR 2 DAYS
     Route: 065
  8. PREDNISONE [Concomitant]
     Dosage: FOR 2 DAYS
     Route: 065
  9. PREDNISONE [Concomitant]
     Dosage: FOR 2 DAYS
     Route: 065
  10. PREDNISONE [Concomitant]
     Dosage: FOR 2 DAYS
     Route: 065
  11. SIMVASTATIN [Concomitant]
     Route: 065
  12. TRICOR [Concomitant]
     Route: 065
  13. LUNESTA [Concomitant]
     Route: 065
  14. RAMIPRIL [Concomitant]
     Route: 065
  15. METOPROLOL SUCCINATE [Concomitant]
     Route: 065
  16. HYDROCORTISONE ACETATE [Concomitant]
     Route: 054
  17. HYDROCHLOROTHIAZIDE [Concomitant]
     Route: 054
  18. NASONEX [Concomitant]
     Route: 055
  19. TESTOSTERONE CYPIONATE [Concomitant]
     Route: 065
  20. NEXIUM [Concomitant]
     Route: 065
  21. KETOCONAZOLE [Concomitant]
     Indication: HIV INFECTION
     Route: 065

REACTIONS (5)
  - ATRIAL FIBRILLATION [None]
  - BLOOD CREATININE INCREASED [None]
  - HYPOGLYCAEMIA [None]
  - LEUKOPLAKIA ORAL [None]
  - MELANOCYTIC NAEVUS [None]
